FAERS Safety Report 8591504-9 (Version None)
Quarter: 2012Q3

REPORT INFORMATION
  Report Type: 
  Country: None (occurrence: None)
  Receive Date: 20120814
  Receipt Date: 20120801
  Transmission Date: 20120928
  Serious: Yes (Other)
  Sender: FDA-Public Use
  Company Number: ES-RANBAXY-2012RR-58730

PATIENT
  Age: 61 Year
  Sex: Female

DRUGS (1)
  1. ACYCLOVIR [Suspect]
     Indication: HERPES ZOSTER
     Dosage: 800 MG/ 12 HOURS
     Route: 048

REACTIONS (4)
  - NEUROTOXICITY [None]
  - HALLUCINATION, VISUAL [None]
  - PSYCHOTIC DISORDER [None]
  - DYSARTHRIA [None]
